FAERS Safety Report 9813444 (Version 1)
Quarter: 2014Q1

REPORT INFORMATION
  Report Type: Spontaneous
  Country: US (occurrence: None)
  Receive Date: 20140109
  Receipt Date: 20140109
  Transmission Date: 20141002
  Serious: Yes (Death)
  Sender: FDA-Public Use
  Company Number: None

PATIENT
  Age: 62 Year
  Sex: Female
  Weight: 60 kg

DRUGS (11)
  1. DOCETAXEL [Suspect]
     Route: 042
     Dates: start: 20131112, end: 20131203
  2. ALBUTEROL [Concomitant]
  3. CITALOPRAM [Concomitant]
  4. CLONAZEPAM [Concomitant]
  5. DEXAMETHASONE [Concomitant]
  6. MS CONTIN [Concomitant]
  7. OXYCODONE [Concomitant]
  8. PROCHLORPERAZINE [Concomitant]
  9. TRAZODONE [Concomitant]
  10. IBUPROFEN [Concomitant]
  11. MULTIVITAMIN [Concomitant]

REACTIONS (4)
  - Disease progression [None]
  - Vomiting [None]
  - Loss of consciousness [None]
  - Fall [None]
